FAERS Safety Report 7553695-8 (Version None)
Quarter: 2011Q2

REPORT INFORMATION
  Report Type: 
  Country: None (occurrence: None)
  Receive Date: 20110617
  Receipt Date: 20110119
  Transmission Date: 20111010
  Serious: No
  Sender: FDA-Public Use
  Company Number: IT-CELGENEUS-083-21880-10120974

PATIENT
  Sex: Female

DRUGS (10)
  1. LMWH [Concomitant]
     Indication: PROPHYLAXIS
     Route: 058
  2. ONCOVIN [Suspect]
     Indication: DIFFUSE LARGE B-CELL LYMPHOMA
     Dosage: 1.9 MILLIGRAM
     Route: 065
     Dates: start: 20081015
  3. DOXORUBICIN HCL [Suspect]
     Indication: DIFFUSE LARGE B-CELL LYMPHOMA
     Dosage: 70 MILLIGRAM
     Route: 065
     Dates: start: 20081015
  4. FLECAINIDE ACETATE [Concomitant]
     Indication: PROPHYLAXIS
     Route: 065
  5. CYCLOPHOSPHAMIDE [Suspect]
     Indication: DIFFUSE LARGE B-CELL LYMPHOMA
     Dosage: 1000 MILLIGRAM
     Route: 065
     Dates: start: 20081015
  6. PEG-FILGRASTIM [Concomitant]
     Indication: SUPPORTIVE CARE
     Route: 065
  7. RITUXIMAB [Suspect]
     Indication: DIFFUSE LARGE B-CELL LYMPHOMA
     Dosage: 500 MILLIGRAM
     Route: 065
     Dates: start: 20081015
  8. PREDNISONE [Suspect]
     Indication: DIFFUSE LARGE B-CELL LYMPHOMA
     Dosage: 55 MILLIGRAM
     Route: 065
     Dates: start: 20081015
  9. REVLIMID [Suspect]
     Indication: DIFFUSE LARGE B-CELL LYMPHOMA
     Dosage: 20 MILLIGRAM
     Route: 048
     Dates: start: 20080324, end: 20081028
  10. REVLIMID [Suspect]
     Dosage: 20 MILLIGRAM
     Route: 048
     Dates: start: 20081112, end: 20081225

REACTIONS (1)
  - HYPOTENSION [None]
